FAERS Safety Report 26136893 (Version 1)
Quarter: 2025Q4

REPORT INFORMATION
  Report Type: Spontaneous
  Country: US (occurrence: None)
  Receive Date: 20251209
  Receipt Date: 20251209
  Transmission Date: 20260117
  Serious: No
  Sender: HALOZYME
  Company Number: US-HALOZYME THERAPEUTICS, INC.-2024-US-TX -10578

PATIENT
  Age: 22 Year

DRUGS (2)
  1. XYOSTED [Suspect]
     Active Substance: TESTOSTERONE ENANTHATE
     Indication: Transgender hormonal therapy
     Dosage: 100 MG/0.5ML
     Route: 058
  2. XYOSTED [Suspect]
     Active Substance: TESTOSTERONE ENANTHATE
     Indication: Gender dysphoria

REACTIONS (2)
  - Injection site pain [Unknown]
  - Off label use [Unknown]
